FAERS Safety Report 7410291-0 (Version None)
Quarter: 2011Q2

REPORT INFORMATION
  Report Type: 
  Country: None (occurrence: None)
  Receive Date: 20110412
  Receipt Date: 20110401
  Transmission Date: 20111010
  Serious: Yes (Hospitalization)
  Sender: FDA-Public Use
  Company Number: NL-MEDIMMUNE-MEDI-0013052

PATIENT
  Sex: Male
  Weight: 6.57 kg

DRUGS (11)
  1. SYNAGIS [Suspect]
     Route: 030
     Dates: start: 20110401, end: 20110401
  2. PANCREATIN [Concomitant]
  3. VITAMIN A/D/E/K [Concomitant]
  4. ALBUTEROL SULFATE AUTOHALER [Concomitant]
  5. NOSE DROPS NOS [Concomitant]
  6. SODIUM CHLORIDE [Concomitant]
  7. ESOMEPRAZOLE MAGNESIUM [Concomitant]
  8. SYNAGIS [Suspect]
     Route: 030
     Dates: start: 20110204, end: 20110304
  9. IPRATROPIUM BROMIDE [Concomitant]
  10. DOMPERIDONE [Concomitant]
  11. AEROSOL 100 [Concomitant]

REACTIONS (2)
  - OLIGODIPSIA [None]
  - CHANGE OF BOWEL HABIT [None]
